FAERS Safety Report 16288522 (Version 1)
Quarter: 2019Q2

REPORT INFORMATION
  Report Type: Spontaneous
  Country: US (occurrence: US)
  Receive Date: 20190509
  Receipt Date: 20190509
  Transmission Date: 20190711
  Serious: Yes (Hospitalization, Other)
  Sender: FDA-Public Use
  Company Number: US-ZYDUS-036583

PATIENT
  Age: 60 Year
  Sex: Male

DRUGS (1)
  1. AZATHIOPRINE. [Suspect]
     Active Substance: AZATHIOPRINE
     Indication: CROHN^S DISEASE
     Route: 065

REACTIONS (13)
  - Chest pain [Unknown]
  - Cardiogenic shock [Unknown]
  - Ventricular dysfunction [Recovered/Resolved]
  - Hypokinesia [Unknown]
  - Eosinophilia [Unknown]
  - Electrocardiogram ST segment elevation [Unknown]
  - Rash pustular [Recovering/Resolving]
  - Pyrexia [Unknown]
  - Atrial fibrillation [Unknown]
  - Hypotension [Unknown]
  - Drug hypersensitivity [Unknown]
  - Eosinophilic myocarditis [Unknown]
  - Troponin I increased [Unknown]
